FAERS Safety Report 8583260-5 (Version None)
Quarter: 2012Q3

REPORT INFORMATION
  Report Type: 
  Country: None (occurrence: None)
  Receive Date: 20120809
  Receipt Date: 20120730
  Transmission Date: 20120928
  Serious: Yes (Disabling)
  Sender: FDA-Public Use
  Company Number: AU-BAXTER-2012BAX013074

PATIENT
  Sex: Female

DRUGS (4)
  1. KIOVIG [Suspect]
     Indication: MYASTHENIA GRAVIS
     Route: 042
     Dates: start: 20120716
  2. KIOVIG [Suspect]
     Route: 042
     Dates: start: 20120717
  3. KIOVIG [Suspect]
     Route: 042
     Dates: start: 20120719
  4. KIOVIG [Suspect]
     Route: 042
     Dates: start: 20120720

REACTIONS (3)
  - HEADACHE [None]
  - NAUSEA [None]
  - PAIN [None]
